FAERS Safety Report 5240616-6 (Version None)
Quarter: 2007Q1

REPORT INFORMATION
  Report Type: 
  Country: None (occurrence: None)
  Receive Date: 20061208
  Receipt Date: 20051004
  Transmission Date: 20070707
  Serious: Yes (Other)
  Sender: FDA-Public Use
  Company Number: 2005UW14864

PATIENT
  Age: 74 Year
  Sex: Female
  Weight: 68.038 kg

DRUGS (6)
  1. CRESTOR [Suspect]
     Indication: BLOOD CHOLESTEROL INCREASED
     Dosage: 10 MG PO
     Route: 048
     Dates: start: 20051004
  2. NEURONTIN [Concomitant]
  3. NORVASC [Concomitant]
  4. HYDROCHLOROTHIAZIDE [Concomitant]
  5. LEVOXYL [Concomitant]
  6. FOSAMAX [Concomitant]

REACTIONS (2)
  - ABNORMAL SENSATION IN EYE [None]
  - LACRIMATION INCREASED [None]
